FAERS Safety Report 5134390-1 (Version None)
Quarter: 2006Q4

REPORT INFORMATION
  Report Type: 
  Country: None (occurrence: None)
  Receive Date: 20061025
  Receipt Date: 20061011
  Transmission Date: 20070319
  Serious: Yes (Other)
  Sender: FDA-Public Use
  Company Number: 2006AP04813

PATIENT
  Age: 41 Year
  Sex: Female
  Weight: 35 kg

DRUGS (3)
  1. MARCAINE [Suspect]
     Route: 037
  2. DIPRIVAN [Suspect]
     Indication: SEDATION
     Route: 042
  3. OXYGEN [Concomitant]
     Indication: SEDATION
     Route: 055

REACTIONS (5)
  - AIRWAY COMPLICATION OF ANAESTHESIA [None]
  - NON-CARDIOGENIC PULMONARY OEDEMA [None]
  - OBSTRUCTIVE AIRWAYS DISORDER [None]
  - PROCEDURAL COMPLICATION [None]
  - STRIDOR [None]
